FAERS Safety Report 16243746 (Version 1)
Quarter: 2019Q2

REPORT INFORMATION
  Report Type: Spontaneous
  Country: US (occurrence: US)
  Receive Date: 20190425
  Receipt Date: 20190425
  Transmission Date: 20190711
  Serious: Yes (Hospitalization)
  Sender: FDA-Public Use
  Company Number: None

PATIENT
  Sex: Female

DRUGS (10)
  1. LISINOPRIL/HCTZ [Concomitant]
     Active Substance: HYDROCHLOROTHIAZIDE\LISINOPRIL
  2. XELJANZ XR [Suspect]
     Active Substance: TOFACITINIB CITRATE
     Indication: RHEUMATOID ARTHRITIS
     Route: 048
     Dates: start: 20180216
  3. BUPRENORPHINE. [Concomitant]
     Active Substance: BUPRENORPHINE
  4. MELOXICAM. [Concomitant]
     Active Substance: MELOXICAM
  5. ROSUVASTATIN. [Concomitant]
     Active Substance: ROSUVASTATIN
  6. FOLIC ACID. [Concomitant]
     Active Substance: FOLIC ACID
  7. SYNTHROID [Concomitant]
     Active Substance: LEVOTHYROXINE SODIUM
  8. LIDOCAINE TOPICAL [Concomitant]
     Active Substance: LIDOCAINE
  9. METHOTREXATE. [Concomitant]
     Active Substance: METHOTREXATE
  10. TRAMADOL. [Concomitant]
     Active Substance: TRAMADOL

REACTIONS (1)
  - Pneumonia [None]
